FAERS Safety Report 5914630-9 (Version None)
Quarter: 2008Q4

REPORT INFORMATION
  Report Type: 
  Country: None (occurrence: None)
  Receive Date: 20081010
  Receipt Date: 20080723
  Transmission Date: 20090506
  Serious: No
  Sender: FDA-Public Use
  Company Number: A0739106A

PATIENT
  Age: 59 Year
  Sex: Male

DRUGS (2)
  1. REQUIP XL [Suspect]
     Indication: PARKINSON'S DISEASE
     Dosage: 4MG SINGLE DOSE
     Route: 048
     Dates: start: 20080722
  2. UNKNOWN [Concomitant]

REACTIONS (1)
  - NASAL CONGESTION [None]
